FAERS Safety Report 10183118 (Version 1)
Quarter: 2014Q2

REPORT INFORMATION
  Report Type: Spontaneous
  Country: US (occurrence: US)
  Receive Date: 20140520
  Receipt Date: 20140520
  Transmission Date: 20141212
  Serious: Yes (Other)
  Sender: FDA-Public Use
  Company Number: US-ASTRAZENECA-2014SE33202

PATIENT
  Age: 34 Year
  Sex: Female
  Weight: 92.5 kg

DRUGS (13)
  1. SYMBICORT [Suspect]
     Indication: CHRONIC OBSTRUCTIVE PULMONARY DISEASE
     Dosage: 80 4.5 MCG, UNKNOWN
     Route: 055
     Dates: start: 201310
  2. SYMBICORT [Suspect]
     Indication: CHRONIC OBSTRUCTIVE PULMONARY DISEASE
     Dosage: 160 4.5 MCG, 2 PUFFS BID
     Route: 055
     Dates: start: 201311
  3. PROAIR [Concomitant]
     Indication: ASTHMA
     Dosage: 2 PUFF EVERY FOUR HOURS
     Route: 055
  4. DIAZEPAM [Concomitant]
     Indication: NERVOUS SYSTEM DISORDER
     Route: 048
  5. DILANTIN [Concomitant]
     Indication: CONVULSION
     Route: 048
  6. ZANTAC [Concomitant]
     Indication: GASTROOESOPHAGEAL REFLUX DISEASE
     Route: 048
  7. ZAMAFLEX [Concomitant]
     Indication: MUSCLE RELAXANT THERAPY
     Route: 048
  8. AUGMENTIN [Concomitant]
     Indication: ANTIBIOTIC THERAPY
     Dosage: FOR 14 DAYS
     Route: 048
  9. ZPACK [Concomitant]
     Dosage: 5 DAYS
     Route: 048
  10. SINGULAIR [Concomitant]
     Route: 048
  11. HYDROXINE HCL [Concomitant]
     Dosage: 25MG 2 TABS HS
     Route: 048
  12. TRAZODONE [Concomitant]
     Route: 048
  13. ALBUTEROL NEBULIZER [Concomitant]
     Indication: ASTHMA
     Dosage: 1 NEB AS NEEDED Q4H
     Route: 055

REACTIONS (7)
  - Pneumothorax [Unknown]
  - Bronchitis [Unknown]
  - Pharyngitis streptococcal [Unknown]
  - Migraine [Unknown]
  - Muscular weakness [Not Recovered/Not Resolved]
  - Balance disorder [Not Recovered/Not Resolved]
  - Panic attack [Unknown]
